FAERS Safety Report 16232531 (Version 2)
Quarter: 2019Q2

REPORT INFORMATION
  Report Type: Spontaneous
  Country: JP (occurrence: JP)
  Receive Date: 20190424
  Receipt Date: 20190601
  Transmission Date: 20190711
  Serious: Yes (Hospitalization)
  Sender: FDA-Public Use
  Company Number: JP-UCBSA-2019014401

PATIENT
  Age: 62 Year
  Sex: Male

DRUGS (4)
  1. CANDESARTAN. [Suspect]
     Active Substance: CANDESARTAN
     Indication: PRODUCT USED FOR UNKNOWN INDICATION
     Dosage: 8MG DAILY
     Route: 048
     Dates: start: 20190320, end: 20190322
  2. E KEPPRA [Suspect]
     Active Substance: LEVETIRACETAM
     Indication: EPILEPSY
     Dosage: 1000 MG /DAY
     Route: 048
     Dates: start: 20190320, end: 20190321
  3. LANSOPRAZOLE. [Concomitant]
     Active Substance: LANSOPRAZOLE
     Dosage: 15 MIG DAILY
     Route: 048
     Dates: start: 20190320, end: 20190322
  4. VISIPAQUE [Suspect]
     Active Substance: IODIXANOL
     Indication: SCAN WITH CONTRAST
     Dosage: UNK
     Dates: start: 20190319

REACTIONS (1)
  - Erythema multiforme [Recovered/Resolved]

NARRATIVE: CASE EVENT DATE: 20190321
